FAERS Safety Report 24431922 (Version 1)
Quarter: 2024Q4

REPORT INFORMATION
  Report Type: Spontaneous
  Country: DE (occurrence: DE)
  Receive Date: 20241014
  Receipt Date: 20241014
  Transmission Date: 20250114
  Serious: Yes (Hospitalization)
  Sender: NOVARTIS
  Company Number: DE-ML39632-2311916-0

PATIENT
  Age: 41 Year
  Sex: Male
  Weight: 58 kg

DRUGS (13)
  1. KESIMPTA [Suspect]
     Active Substance: OFATUMUMAB
     Indication: Relapsing multiple sclerosis
     Dosage: 20 MG, QMO
     Route: 058
     Dates: start: 20210914
  2. OCRELIZUMAB [Suspect]
     Active Substance: OCRELIZUMAB
     Indication: Relapsing multiple sclerosis
     Dosage: 600 MG (6 MONTHS)
     Route: 042
     Dates: start: 20190923, end: 20210315
  3. OCRELIZUMAB [Suspect]
     Active Substance: OCRELIZUMAB
     Dosage: 300 MG, Q2W
     Route: 042
     Dates: start: 20190325, end: 20190408
  4. OCRELIZUMAB [Suspect]
     Active Substance: OCRELIZUMAB
     Dosage: 600 MG
     Route: 042
     Dates: start: 20220307
  5. BACLOFEN [Concomitant]
     Active Substance: BACLOFEN
     Indication: Muscle spasticity
     Dosage: 10 MG, QD (END DATE IS ONGOING)
     Route: 048
     Dates: start: 201604
  6. DANTROLENE SODIUM [Concomitant]
     Active Substance: DANTROLENE SODIUM
     Indication: Muscle spasticity
     Dosage: 25 MG, QD (END DATE IS ONGOING)
     Route: 048
     Dates: start: 20230102
  7. Md [Concomitant]
     Indication: Product used for unknown indication
     Dosage: 250 MG (END DATE IS ONGOING)
     Route: 042
     Dates: start: 20190325
  8. ZOPICLONE [Concomitant]
     Active Substance: ZOPICLONE
     Indication: Sleep disorder
     Dosage: 7.5 MG, QD (END DATE IS ONGOING)
     Route: 048
     Dates: start: 20150121
  9. SODIUM PROPIONATE [Concomitant]
     Active Substance: SODIUM PROPIONATE
     Indication: Prophylaxis
     Dosage: 500 MG, PRN (DEFINITION OF THE INTERVAL: AS REQUIRED)
     Route: 048
     Dates: start: 20210302, end: 20210304
  10. SODIUM PICOSULFATE [Concomitant]
     Active Substance: SODIUM PICOSULFATE
     Indication: Product used for unknown indication
     Dosage: 1 MG, QD (END DATE IS ONGOING)
     Route: 048
     Dates: start: 20230327
  11. MIRTAZAPINE [Concomitant]
     Active Substance: MIRTAZAPINE
     Indication: Sleep disorder
     Dosage: 45 MG, QD (END DATE IS ONGOING)
     Route: 048
     Dates: start: 201203
  12. DIMETHINDENE [Concomitant]
     Active Substance: DIMETHINDENE
     Indication: Product used for unknown indication
     Dosage: 1 MG (END DATE IS ONGOING)
     Route: 042
     Dates: start: 20190325
  13. CHOLECALCIFEROL [Concomitant]
     Active Substance: CHOLECALCIFEROL
     Indication: Vitamin supplementation
     Dosage: 20000 IU (END DATE IS ONGOING)
     Route: 048
     Dates: start: 2015

REACTIONS (1)
  - Pulmonary sepsis [Not Recovered/Not Resolved]

NARRATIVE: CASE EVENT DATE: 20240501
